FAERS Safety Report 9912700 (Version 1)
Quarter: 2014Q1

REPORT INFORMATION
  Report Type: Spontaneous
  Country: US (occurrence: None)
  Receive Date: 20140212
  Receipt Date: 20140212
  Transmission Date: 20141002
  Serious: Yes (Hospitalization)
  Sender: FDA-Public Use
  Company Number: SYM-2014-17150

PATIENT
  Sex: Male

DRUGS (1)
  1. XENAZINE [Suspect]

REACTIONS (1)
  - Hospitalisation [None]
